FAERS Safety Report 5566466-9 (Version None)
Quarter: 2007Q4

REPORT INFORMATION
  Report Type: 
  Country: None (occurrence: None)
  Receive Date: 20071219
  Receipt Date: 20071004
  Transmission Date: 20080405
  Serious: No
  Sender: FDA-Public Use
  Company Number: US-ABBOTT-01P-163-0187106-00

PATIENT
  Sex: Female
  Weight: 62.652 kg

DRUGS (1)
  1. VICODIN ES [Suspect]
     Indication: PAIN
     Route: 048
     Dates: start: 19980301

REACTIONS (1)
  - DYSPNOEA [None]
